FAERS Safety Report 25814223 (Version 4)
Quarter: 2025Q4

REPORT INFORMATION
  Report Type: Spontaneous
  Country: US (occurrence: US)
  Receive Date: 20250917
  Receipt Date: 20251001
  Transmission Date: 20260118
  Serious: No
  Sender: ALEXION PHARMACEUTICALS
  Company Number: US-AstraZeneca-CH-00950710AP

PATIENT
  Age: 72 Year
  Sex: Female

DRUGS (1)
  1. AIRSUPRA [Suspect]
     Active Substance: ALBUTEROL SULFATE\BUDESONIDE
     Dosage: DOSE UNKNOWN
     Route: 065

REACTIONS (3)
  - Taste disorder [Unknown]
  - Incorrect dose administered by device [Unknown]
  - Device malfunction [Unknown]
